FAERS Safety Report 7075488-0 (Version None)
Quarter: 2010Q4

REPORT INFORMATION
  Report Type: 
  Country: None (occurrence: None)
  Receive Date: 20101030
  Receipt Date: 20100917
  Transmission Date: 20110411
  Serious: No
  Sender: FDA-Public Use
  Company Number: US-WYE-H17583710

PATIENT
  Sex: Female

DRUGS (3)
  1. PRISTIQ [Suspect]
     Dosage: 50 MG TABLET, FREQUENCY UNSPECIFIED
  2. ACETYLSALICYLIC ACID/BUTALBITAL/CAFFEINE [Concomitant]
  3. TOPAMAX [Concomitant]

REACTIONS (2)
  - MIGRAINE [None]
  - SOMNOLENCE [None]
